FAERS Safety Report 5504513-0 (Version None)
Quarter: 2007Q4

REPORT INFORMATION
  Report Type: 
  Country: None (occurrence: None)
  Receive Date: 20071031
  Receipt Date: 20071018
  Transmission Date: 20080405
  Serious: Yes (Other)
  Sender: FDA-Public Use
  Company Number: STI-2007-01724

PATIENT
  Age: 45 Year
  Sex: Female

DRUGS (1)
  1. HYDROQUINONE (UNSPECIFIED) (HYDROQUINONE) (2%, CREAM) [Suspect]
     Indication: SKIN HYPERPIGMENTATION

REACTIONS (6)
  - ACANTHOSIS [None]
  - APPLICATION SITE DISCOLOURATION [None]
  - HYPERKERATOSIS [None]
  - OCHRONOSIS [None]
  - OFF LABEL USE [None]
  - RASH MACULAR [None]
